FAERS Safety Report 5519387-1 (Version None)
Quarter: 2007Q4

REPORT INFORMATION
  Report Type: 
  Country: None (occurrence: None)
  Receive Date: 20071114
  Receipt Date: 20071106
  Transmission Date: 20080405
  Serious: Yes (Other)
  Sender: FDA-Public Use
  Company Number: 2007BI015528

PATIENT
  Age: 44 Year
  Sex: Female

DRUGS (3)
  1. AVONEX [Suspect]
     Indication: RELAPSING-REMITTING MULTIPLE SCLEROSIS
     Dosage: 30 UG;QW;IM
     Route: 030
     Dates: start: 20041001
  2. EUTHYROX [Concomitant]
  3. IBUPROFEN [Concomitant]

REACTIONS (4)
  - BONE MARROW DISORDER [None]
  - BONE MARROW TUMOUR CELL INFILTRATION [None]
  - CHONDROPATHY [None]
  - SPINAL OSTEOARTHRITIS [None]
